FAERS Safety Report 4360778-2 (Version None)
Quarter: 2004Q2

REPORT INFORMATION
  Report Type: 
  Country: None (occurrence: None)
  Receive Date: 20040517
  Receipt Date: 20040504
  Transmission Date: 20050107
  Serious: Yes (Disabling)
  Sender: FDA-Public Use
  Company Number: 2004208060US

PATIENT
  Age: 45 Year
  Sex: Female
  Weight: 86.2 kg

DRUGS (7)
  1. DOXORUBICIN HCL [Suspect]
     Indication: BREAST CANCER
     Dosage: Q 2 WEEKS, IV
     Route: 042
     Dates: start: 20030617, end: 20030830
  2. TAXOL [Suspect]
     Indication: BREAST CANCER
     Dosage: SINGLE, IV
     Route: 042
     Dates: start: 20030910, end: 20030910
  3. CYCLOPHOSPHAMIDE [Suspect]
     Indication: BREAST CANCER
     Dosage: Q 2 WEEKS, IV
     Route: 042
     Dates: start: 20030617, end: 20030830
  4. FLUOROURACIL [Suspect]
     Indication: BREAST CANCER
     Dosage: Q 2 WEEKS, IV
     Route: 042
     Dates: start: 20030617, end: 20030830
  5. TAXOTERE [Suspect]
     Indication: BREAST CANCER
     Dosage: Q 2 WEEKS, IV
     Route: 042
     Dates: start: 20030924, end: 20031027
  6. NEURONTIN [Concomitant]
  7. LORTAB [Concomitant]

REACTIONS (1)
  - OSTEOARTHRITIS [None]
